FAERS Safety Report 14557947 (Version 3)
Quarter: 2018Q2

REPORT INFORMATION
  Report Type: Spontaneous
  Country: CA (occurrence: CA)
  Receive Date: 20180221
  Receipt Date: 20180404
  Transmission Date: 20180711
  Serious: Yes (Congenital Anomaly)
  Sender: FDA-Public Use
  Company Number: CA-ABBVIE-18S-028-2264370-00

PATIENT

DRUGS (1)
  1. DEPAKENE [Suspect]
     Active Substance: VALPROIC ACID
     Indication: MATERNAL EXPOSURE TIMING UNSPECIFIED
     Route: 064

REACTIONS (3)
  - Foetal exposure during pregnancy [Unknown]
  - Intellectual disability [Not Recovered/Not Resolved]
  - Foetal anticonvulsant syndrome [Not Recovered/Not Resolved]
